FAERS Safety Report 5397552-4 (Version None)
Quarter: 2007Q3

REPORT INFORMATION
  Report Type: 
  Country: None (occurrence: None)
  Receive Date: 20070726
  Receipt Date: 20070716
  Transmission Date: 20080115
  Serious: Yes (Congenital Anomaly, Other)
  Sender: FDA-Public Use
  Company Number: US-AMGEN-US232998

PATIENT

DRUGS (3)
  1. ENBREL [Suspect]
     Indication: RHEUMATOID ARTHRITIS
     Route: 064
     Dates: start: 20051001, end: 20061001
  2. PROZAC [Concomitant]
     Route: 064
  3. ADVIL LIQUI-GELS [Concomitant]
     Route: 064

REACTIONS (4)
  - COLOBOMA [None]
  - HYPOSPADIAS [None]
  - PREMATURE BABY [None]
  - SOLITARY KIDNEY [None]
